FAERS Safety Report 25413567 (Version 1)
Quarter: 2025Q2

REPORT INFORMATION
  Report Type: Spontaneous
  Country: US (occurrence: None)
  Receive Date: 20250607
  Receipt Date: 20250607
  Transmission Date: 20250717
  Serious: Yes (Other)
  Sender: FDA-CTU
  Company Number: None

PATIENT
  Age: 64 Year
  Sex: Male
  Weight: 90.45 kg

DRUGS (4)
  1. ENTRESTO [Suspect]
     Active Substance: SACUBITRIL\VALSARTAN
     Indication: Cardiac failure
     Dates: start: 20200301
  2. ISOSORBIDE MONONITRATE [Concomitant]
     Active Substance: ISOSORBIDE MONONITRATE
  3. metroprol [Concomitant]
  4. B12 [Concomitant]

REACTIONS (5)
  - Blood pressure decreased [None]
  - Dyspnoea [None]
  - Dizziness [None]
  - Mobility decreased [None]
  - Therapy change [None]

NARRATIVE: CASE EVENT DATE: 20250327
